FAERS Safety Report 9219682 (Version 2)
Quarter: 2013Q2

REPORT INFORMATION
  Report Type: Spontaneous
  Country: US (occurrence: US)
  Receive Date: 20130409
  Receipt Date: 20130516
  Transmission Date: 20140414
  Serious: No
  Sender: FDA-Public Use
  Company Number: US-PFIZER INC-2013107459

PATIENT
  Age: 60 Year
  Sex: Female
  Weight: 81.6 kg

DRUGS (6)
  1. LEVOXYL [Suspect]
     Indication: THYROID DISORDER
     Dosage: 100 UG, 1X/DAY
     Dates: start: 2003
  2. SYNTHROID [Suspect]
     Indication: THYROID DISORDER
     Dosage: 0.15 MG, UNK
     Dates: start: 1986
  3. DIAZEPAM [Concomitant]
     Indication: MUSCLE SPASMS
     Dosage: 5 MG, 1X/DAY
  4. ZANTAC [Concomitant]
     Indication: GASTROENTERITIS
     Dosage: 150 MG, 1X/DAY
  5. ZANTAC [Concomitant]
     Indication: HIATUS HERNIA
  6. PROZAC [Concomitant]
     Indication: DEPRESSION
     Dosage: 10 MG, 1X/DAY

REACTIONS (4)
  - Dizziness [Not Recovered/Not Resolved]
  - Joint swelling [Not Recovered/Not Resolved]
  - Myalgia [Not Recovered/Not Resolved]
  - Muscle spasms [Not Recovered/Not Resolved]
